FAERS Safety Report 10879795 (Version 1)
Quarter: 2015Q1

REPORT INFORMATION
  Report Type: Spontaneous
  Country: US (occurrence: US)
  Receive Date: 20150302
  Receipt Date: 20150302
  Transmission Date: 20150721
  Serious: No
  Sender: FDA-Public Use
  Company Number: US-PFIZER INC-2015066283

PATIENT
  Sex: Male
  Weight: 82 kg

DRUGS (2)
  1. LIPITOR [Suspect]
     Active Substance: ATORVASTATIN CALCIUM
     Indication: BLOOD CHOLESTEROL ABNORMAL
     Dosage: UNK
     Dates: start: 201404, end: 2014
  2. ASPIRIN. [Concomitant]
     Active Substance: ASPIRIN
     Dosage: FULL ASPIRIN 325 MG EVERY DAY
     Route: 048
     Dates: start: 201404

REACTIONS (1)
  - Pain [Unknown]
